FAERS Safety Report 4989929-3 (Version None)
Quarter: 2006Q2

REPORT INFORMATION
  Report Type: 
  Country: None (occurrence: None)
  Receive Date: 20060503
  Receipt Date: 20060413
  Transmission Date: 20061013
  Serious: Yes (Other)
  Sender: FDA-Public Use
  Company Number: US-AMGEN-US176214

PATIENT
  Sex: Female
  Weight: 95.3 kg

DRUGS (3)
  1. ARANESP [Suspect]
     Indication: DIALYSIS
     Route: 058
     Dates: start: 20060301, end: 20060301
  2. METHOTREXATE [Concomitant]
  3. MS CONTIN [Concomitant]

REACTIONS (2)
  - DEHYDRATION [None]
  - STEVENS-JOHNSON SYNDROME [None]
